FAERS Safety Report 5428055-6 (Version None)
Quarter: 2007Q3

REPORT INFORMATION
  Report Type: 
  Country: None (occurrence: None)
  Receive Date: 20070828
  Receipt Date: 20070821
  Transmission Date: 20080115
  Serious: Yes (Hospitalization)
  Sender: FDA-Public Use
  Company Number: US-ROXANE LABORATORIES, INC-2007-BP-19605RO

PATIENT
  Age: 43 Year
  Sex: Female

DRUGS (4)
  1. AZATHIOPRINE [Suspect]
     Indication: COLITIS ULCERATIVE
     Route: 048
  2. PREDNISONE TAB [Suspect]
     Indication: COLITIS ULCERATIVE
     Route: 048
  3. MESALAMINE [Suspect]
     Indication: COLITIS ULCERATIVE
     Route: 048
  4. ORAL ANTIBIOTICS [Concomitant]
     Indication: COUGH
     Route: 048

REACTIONS (6)
  - COUGH [None]
  - CYANOSIS [None]
  - DRUG INEFFECTIVE [None]
  - DYSPNOEA [None]
  - HYPOXIA [None]
  - PULMONARY TOXICITY [None]
